FAERS Safety Report 19250376 (Version 2)
Quarter: 2021Q2

REPORT INFORMATION
  Report Type: Spontaneous
  Country: GB (occurrence: GB)
  Receive Date: 20210513
  Receipt Date: 20210520
  Transmission Date: 20210717
  Serious: Yes (Death)
  Sender: FDA-Public Use
  Company Number: GB-JNJFOC-20210519982

PATIENT
  Age: 23 Year
  Sex: Female
  Weight: 67 kg

DRUGS (9)
  1. FUROSEMIDE. [Concomitant]
     Active Substance: FUROSEMIDE
     Indication: LOWER RESPIRATORY TRACT INFECTION
     Dosage: UNK
  2. EPLERENONE. [Concomitant]
     Active Substance: EPLERENONE
     Dosage: UNK
  3. SERTRALINE [Concomitant]
     Active Substance: SERTRALINE HYDROCHLORIDE
     Indication: DEPRESSION
     Dosage: UNK
  4. BISOPROLOL [Concomitant]
     Active Substance: BISOPROLOL
     Dosage: UNK
  5. ENTRESTO [Suspect]
     Active Substance: SACUBITRIL\VALSARTAN
     Dosage: UNK
  6. ASTRAZENECA COVID?19 VACCINE [Suspect]
     Active Substance: AZD-1222
     Dosage: 1 DF
     Dates: start: 20210314, end: 20210314
  7. XARELTO [Suspect]
     Active Substance: RIVAROXABAN
     Indication: LEFT VENTRICULAR DYSFUNCTION
     Dosage: UNK
     Route: 048
  8. AMOXICILLIN;CLAVULANIC ACID [Concomitant]
     Active Substance: AMOXICILLIN\CLAVULANIC ACID
     Indication: LOWER RESPIRATORY TRACT INFECTION
     Dosage: UNK
  9. SARS?COV?2 VACCINE [Concomitant]
     Dosage: UNK

REACTIONS (16)
  - Cardiac arrest [Fatal]
  - Lower respiratory tract infection [Fatal]
  - Cardiac failure [Fatal]
  - Arrhythmia [Fatal]
  - Left ventricular dysfunction [Fatal]
  - Peripheral swelling [Fatal]
  - Cardiomyopathy [Fatal]
  - Cough [Fatal]
  - Haemorrhage [Fatal]
  - Pleural effusion [Fatal]
  - Malaise [Fatal]
  - Dyspnoea [Fatal]
  - Activated partial thromboplastin time prolonged [Fatal]
  - Toxicity to various agents [Fatal]
  - Congestive cardiomyopathy [Fatal]
  - Cardiac ventricular disorder [Fatal]

NARRATIVE: CASE EVENT DATE: 20210401
